FAERS Safety Report 15660215 (Version 1)
Quarter: 2018Q4

REPORT INFORMATION
  Report Type: Spontaneous
  Country: US (occurrence: US)
  Receive Date: 20181115
  Receipt Date: 20181115
  Transmission Date: 20190205
  Serious: No
  Sender: FDA-Public Use
  Company Number: None

PATIENT
  Sex: Female

DRUGS (2)
  1. ENBREL [Suspect]
     Active Substance: ETANERCEPT
     Indication: RHEUMATOID ARTHRITIS
     Route: 058
     Dates: start: 20180809
  2. METHOTREXATE. [Suspect]
     Active Substance: METHOTREXATE

REACTIONS (6)
  - Fatigue [None]
  - Alopecia [None]
  - Post procedural complication [None]
  - Contusion [None]
  - Injection site pain [None]
  - Injection site discomfort [None]
